FAERS Safety Report 4313200-6 (Version None)
Quarter: 2004Q1

REPORT INFORMATION
  Report Type: 
  Country: None (occurrence: None)
  Receive Date: 20040304
  Receipt Date: 20040218
  Transmission Date: 20041129
  Serious: Yes (Hospitalization)
  Sender: FDA-Public Use
  Company Number: 184612

PATIENT
  Age: 4 Year
  Sex: Female
  Weight: 18 kg

DRUGS (17)
  1. AVONEX [Suspect]
     Indication: MULTIPLE SCLEROSIS
     Dosage: 0.3 CC BIW IM
     Route: 030
     Dates: start: 20011001, end: 20030801
  2. AVONEX [Suspect]
     Indication: MULTIPLE SCLEROSIS
     Dosage: 0.3 CCF BIW IM
     Route: 030
     Dates: start: 20030826, end: 20030929
  3. AVONEX [Suspect]
     Indication: MULTIPLE SCLEROSIS
     Dosage: 0.15 CC BIW IM
     Route: 030
     Dates: start: 20031013, end: 20031024
  4. NATALIZUMAB [Concomitant]
  5. LACTULOSE [Concomitant]
  6. MULTI-VITAMINS [Concomitant]
  7. BACLOFEN [Concomitant]
  8. CARBATOL [Concomitant]
  9. SENOKOT [Concomitant]
  10. SEPTRA [Concomitant]
  11. NEURONTIN [Concomitant]
  12. OXYCODONE [Concomitant]
  13. DEPAKOTE [Concomitant]
  14. ZANTAC [Concomitant]
  15. MIRALAX [Concomitant]
  16. TEGRETOL [Concomitant]
  17. DILANTIN [Concomitant]

REACTIONS (9)
  - ALANINE AMINOTRANSFERASE INCREASED [None]
  - ASPARTATE AMINOTRANSFERASE INCREASED [None]
  - ASTHENIA [None]
  - BLOOD ALKALINE PHOSPHATASE INCREASED [None]
  - BLOOD BILIRUBIN INCREASED [None]
  - CONDITION AGGRAVATED [None]
  - LIVER FUNCTION TEST ABNORMAL [None]
  - NAUSEA [None]
  - VOMITING [None]
